FAERS Safety Report 8533328-4 (Version None)
Quarter: 2012Q3

REPORT INFORMATION
  Report Type: 
  Country: None (occurrence: None)
  Receive Date: 20120724
  Receipt Date: 20120719
  Transmission Date: 20120928
  Serious: Yes (Hospitalization)
  Sender: FDA-Public Use
  Company Number: GB-SANOFI-AVENTIS-2012SA051646

PATIENT
  Sex: Male
  Weight: 76 kg

DRUGS (1)
  1. HYDROXYCHLOROQUINE SULFATE [Suspect]
     Dosage: DOSE 200 UNITS UNSPECIFIED; DAILY DOSE 400 UNITS UNSPECIFIED
     Route: 065
     Dates: start: 20120306, end: 20120314

REACTIONS (4)
  - SKIN EXFOLIATION [None]
  - RENAL FAILURE ACUTE [None]
  - RASH [None]
  - MALAISE [None]
